FAERS Safety Report 5781230-3 (Version None)
Quarter: 2008Q2

REPORT INFORMATION
  Report Type: 
  Country: None (occurrence: None)
  Receive Date: 20080618
  Receipt Date: 20080613
  Transmission Date: 20081010
  Serious: Yes (Hospitalization)
  Sender: FDA-Public Use
  Company Number: 2008AL006537

PATIENT
  Age: 94 Year
  Sex: Female
  Weight: 54.4316 kg

DRUGS (5)
  1. DIGOXIN [Suspect]
     Indication: HEART RATE IRREGULAR
     Dosage: 0.125/0.25MG, QD, PO
     Route: 048
     Dates: end: 20080301
  2. PLAVIX [Concomitant]
  3. KEPPRA [Concomitant]
  4. ENALAPRIL MALEATE [Concomitant]
  5. ASPIRIN [Concomitant]

REACTIONS (11)
  - ASTHENIA [None]
  - COMPLEX PARTIAL SEIZURES [None]
  - CONVULSION [None]
  - DISORIENTATION [None]
  - DIZZINESS [None]
  - DYSPNOEA [None]
  - ELECTROCARDIOGRAM ABNORMAL [None]
  - HEART RATE INCREASED [None]
  - PALLOR [None]
  - THERAPEUTIC AGENT TOXICITY [None]
  - VERTIGO [None]
